FAERS Safety Report 16245875 (Version 2)
Quarter: 2019Q2

REPORT INFORMATION
  Report Type: Spontaneous
  Country: US (occurrence: US)
  Receive Date: 20190426
  Receipt Date: 20190506
  Transmission Date: 20190711
  Serious: No
  Sender: FDA-Public Use
  Company Number: US-PFIZER INC-2019171754

PATIENT
  Age: 74 Year
  Sex: Female
  Weight: 68.4 kg

DRUGS (3)
  1. DORZOLAMIDE HCL [Concomitant]
     Active Substance: DORZOLAMIDE HYDROCHLORIDE
     Dosage: UNK
  2. LATANOPROST. [Suspect]
     Active Substance: LATANOPROST
     Indication: GLAUCOMA
     Dosage: 2 GTT, 1X/DAY (ONE DROP IN EACH EYE EACH EVENING)
  3. LATANOPROST. [Suspect]
     Active Substance: LATANOPROST
     Indication: MACULAR DEGENERATION
     Dosage: UNK

REACTIONS (1)
  - Eye irritation [Recovered/Resolved]

NARRATIVE: CASE EVENT DATE: 20190410
